FAERS Safety Report 7569249-3 (Version None)
Quarter: 2011Q2

REPORT INFORMATION
  Report Type: 
  Country: None (occurrence: None)
  Receive Date: 20110623
  Receipt Date: 20110617
  Transmission Date: 20111010
  Serious: Yes (Life-Threatening, Hospitalization)
  Sender: FDA-Public Use
  Company Number: PHBS2004JP01482

PATIENT
  Sex: Female
  Weight: 45 kg

DRUGS (19)
  1. GLEEVEC [Suspect]
     Dosage: 300 MG, DAILY
     Route: 048
     Dates: start: 20031210, end: 20040106
  2. LEVOTHYROXINE SODIUM [Concomitant]
     Dosage: 100 UG/D
     Route: 048
     Dates: start: 20031101
  3. LASIX [Concomitant]
     Dosage: 50 MG X2
     Route: 042
  4. ROHYPNOL [Concomitant]
     Dosage: 0.5 MG, UNK
     Route: 048
     Dates: start: 20031023, end: 20031112
  5. GLEEVEC [Suspect]
     Indication: CHRONIC MYELOID LEUKAEMIA
     Dosage: 400 MG, DAILY
     Route: 048
     Dates: start: 20031009, end: 20031208
  6. CARVEDILOL [Suspect]
     Dosage: 2.5 MG, DAILY
     Dates: start: 20040125
  7. OLOPATADINE HCL [Suspect]
     Indication: PRURITUS
     Dosage: 10 MG, DAILY
     Route: 048
     Dates: start: 20031209, end: 20040114
  8. CARVEDILOL [Suspect]
     Indication: CONGESTIVE CARDIOMYOPATHY
     Dosage: 2.5 MG, DAILY
     Route: 048
     Dates: start: 20040106, end: 20040114
  9. DIGOXIN [Concomitant]
     Indication: CARDIAC FAILURE
     Dosage: 0.125 MG, UNK
     Route: 048
     Dates: start: 20030927, end: 20031008
  10. ALLOPURINOL [Concomitant]
     Indication: HYPERURICAEMIA
     Dosage: 200-100 MG/D
     Route: 048
     Dates: start: 20031009, end: 20031030
  11. OLOPATADINE HCL [Suspect]
     Dosage: 10 MG, DAILY
     Route: 048
  12. LEVOTHYROXINE SODIUM [Concomitant]
     Indication: HYPOTHYROIDISM
     Dosage: 25-50-75 UG/D
     Route: 048
     Dates: start: 20031009, end: 20031101
  13. TORSEMIDE [Concomitant]
     Dosage: 4 MG, UNK
     Route: 048
     Dates: start: 20031118, end: 20031201
  14. LASIX [Concomitant]
     Dosage: 20 MG/D
     Route: 048
     Dates: start: 20031202, end: 20031225
  15. ALDACTONE [Concomitant]
     Indication: CARDIAC FAILURE
     Dosage: 25 MG, UNK
     Route: 048
     Dates: start: 20031202, end: 20031225
  16. SILECE [Concomitant]
     Dosage: 1 MG, UNK
     Route: 048
     Dates: start: 20030927, end: 20031022
  17. LASIX [Concomitant]
     Indication: CARDIAC FAILURE
     Dosage: 20 MG, UNK
     Route: 048
     Dates: start: 20030927
  18. NAUZELIN [Concomitant]
     Indication: DECREASED APPETITE
     Dosage: 30-10 MG/D
     Route: 048
     Dates: start: 20031009
  19. MAGNESIUM OXIDE HEAVY [Concomitant]
     Indication: CONSTIPATION
     Dosage: 1 G, UNK
     Route: 048
     Dates: start: 20031009, end: 20031015

REACTIONS (29)
  - CARDIAC FAILURE [None]
  - PULMONARY CONGESTION [None]
  - BLOOD POTASSIUM INCREASED [None]
  - LIVER FUNCTION TEST ABNORMAL [None]
  - RHABDOMYOLYSIS [None]
  - PRURITUS [None]
  - PLATELET COUNT DECREASED [None]
  - GAIT DISTURBANCE [None]
  - COUGH [None]
  - ORTHOPNOEA [None]
  - METABOLIC ACIDOSIS [None]
  - ATRIAL FIBRILLATION [None]
  - LEUKOPENIA [None]
  - GRANULOCYTE COUNT DECREASED [None]
  - NASOPHARYNGITIS [None]
  - WEIGHT INCREASED [None]
  - DYSPNOEA [None]
  - PROTEINURIA [None]
  - PAIN [None]
  - EOSINOPHILIA [None]
  - DECREASED APPETITE [None]
  - MYOGLOBINURIA [None]
  - OEDEMA PERIPHERAL [None]
  - PLEURAL EFFUSION [None]
  - BLOOD CREATININE INCREASED [None]
  - BLOOD CREATINE PHOSPHOKINASE INCREASED [None]
  - GENERALISED OEDEMA [None]
  - EOSINOPHIL COUNT INCREASED [None]
  - EYELID OEDEMA [None]
